FAERS Safety Report 17198232 (Version 4)
Quarter: 2022Q1

REPORT INFORMATION
  Report Type: Spontaneous
  Country: FR (occurrence: FR)
  Receive Date: 20191225
  Receipt Date: 20220314
  Transmission Date: 20220423
  Serious: Yes (Hospitalization)
  Sender: FDA-Public Use
  Company Number: FR-KYOWAKIRIN-2019BKK019387

PATIENT

DRUGS (13)
  1. DROPERIDOL [Suspect]
     Active Substance: DROPERIDOL
     Indication: Prophylaxis of nausea and vomiting
     Dosage: 50?75 MICROGRAM/KG
     Route: 065
  2. ACETAMINOPHEN [Suspect]
     Active Substance: ACETAMINOPHEN
     Indication: Analgesic therapy
     Dosage: UNK
     Route: 065
  3. ATRACURIUM [Suspect]
     Active Substance: ATRACURIUM
     Indication: Neuromuscular blocking therapy
     Dosage: UNK
     Route: 065
  4. DEXAMETHASONE [Suspect]
     Active Substance: DEXAMETHASONE
     Indication: Prophylaxis of nausea and vomiting
     Dosage: 150 MICROGRAM/KILOGRAM
     Route: 065
  5. PROPOFOL [Suspect]
     Active Substance: PROPOFOL
     Indication: Anaesthesia
     Dosage: 10 MILLIGRAM/KILOGRAM, EVERY HOUR
     Route: 065
  6. MORPHINE [Suspect]
     Active Substance: MORPHINE
     Indication: Pain
     Dosage: UNK
     Route: 065
  7. MIDAZOLAM [Suspect]
     Active Substance: MIDAZOLAM
     Indication: Premedication
     Dosage: UNK, 0.3?5 MG/KG
     Route: 054
  8. MIDAZOLAM [Suspect]
     Active Substance: MIDAZOLAM
     Dosage: UNK, 0.3?5 MG/KG
     Route: 060
  9. NITROUS OXIDE [Suspect]
     Active Substance: NITROUS OXIDE
     Indication: General anaesthesia
     Dosage: UNKNOWN
     Route: 055
  10. ONDANSETRON [Suspect]
     Active Substance: ONDANSETRON
     Indication: Prophylaxis of nausea and vomiting
     Dosage: 50 MICROGRAM/KILOGRAM
     Route: 065
  11. ONDANSETRON [Suspect]
     Active Substance: ONDANSETRON
     Dosage: 100 MICROGRAM/KILOGRAM
     Route: 065
  12. KETOPROFEN [Suspect]
     Active Substance: KETOPROFEN
     Indication: Analgesic therapy
     Dosage: UNK
     Route: 065
  13. SUFENTANIL [Suspect]
     Active Substance: SUFENTANIL
     Indication: Analgesic therapy
     Dosage: UNKNOWN
     Route: 042

REACTIONS (3)
  - Procedural nausea [Unknown]
  - Procedural vomiting [Unknown]
  - Drug ineffective [Unknown]
